FAERS Safety Report 5572169-7 (Version None)
Quarter: 2007Q4

REPORT INFORMATION
  Report Type: 
  Country: None (occurrence: None)
  Receive Date: 20071221
  Receipt Date: 20071217
  Transmission Date: 20080405
  Serious: Yes (Hospitalization, Other)
  Sender: FDA-Public Use
  Company Number: US-MERCK-0708USA00144

PATIENT
  Age: 49 Year
  Sex: Female

DRUGS (1)
  1. FOSAMAX [Suspect]
     Indication: OSTEOPOROSIS
     Route: 048
     Dates: start: 20000218, end: 20051001

REACTIONS (11)
  - ANXIETY [None]
  - ARTHRALGIA [None]
  - DENTAL CARIES [None]
  - DEPRESSION [None]
  - HERNIA [None]
  - HIP SWELLING [None]
  - OSTEOMYELITIS [None]
  - STRESS [None]
  - TOOTH ABSCESS [None]
  - TOOTH FRACTURE [None]
  - TOOTH INFECTION [None]
